FAERS Safety Report 4798310-1 (Version None)
Quarter: 2005Q4

REPORT INFORMATION
  Report Type: 
  Country: None (occurrence: None)
  Receive Date: 20051014
  Receipt Date: 20050930
  Transmission Date: 20060501
  Serious: Yes (Other)
  Sender: FDA-Public Use
  Company Number: PHHO2005DE16006

PATIENT
  Sex: Female

DRUGS (6)
  1. RAD [Suspect]
     Indication: LUNG TRANSPLANT
     Dosage: 0.75 MG, BID
  2. NEORAL [Suspect]
     Indication: LUNG TRANSPLANT
     Dosage: 100 MG, BID
  3. NEORAL [Suspect]
     Dosage: 30 MG, BID
  4. SEMPERA [Suspect]
  5. COTRIM [Suspect]
  6. CIPROFLOXACIN [Suspect]

REACTIONS (4)
  - BLOOD CREATININE INCREASED [None]
  - DRUG INTERACTION [None]
  - IMMUNOSUPPRESSANT DRUG LEVEL INCREASED [None]
  - RENAL IMPAIRMENT [None]
